FAERS Safety Report 7951294-7 (Version None)
Quarter: 2011Q4

REPORT INFORMATION
  Report Type: 
  Country: None (occurrence: None)
  Receive Date: 20111129
  Receipt Date: 20111116
  Transmission Date: 20120403
  Serious: Yes (Other)
  Sender: FDA-Public Use
  Company Number: 2011SP045457

PATIENT
  Age: 29 Year
  Sex: Female
  Weight: 75 kg

DRUGS (1)
  1. DESOGESTREL AND ETHINYL ESTRADIOL [Suspect]
     Indication: CONTRACEPTION
     Dosage: ;QD;PO
     Route: 048
     Dates: start: 20110718, end: 20111007

REACTIONS (7)
  - ABORTION SPONTANEOUS [None]
  - DYSMENORRHOEA [None]
  - BLIGHTED OVUM [None]
  - INAPPROPRIATE SCHEDULE OF DRUG ADMINISTRATION [None]
  - MATERNAL EXPOSURE DURING PREGNANCY [None]
  - OVARIAN CYST [None]
  - AMENORRHOEA [None]
